FAERS Safety Report 12568500 (Version 1)
Quarter: 2016Q3

REPORT INFORMATION
  Report Type: Other
  Country: CN (occurrence: CN)
  Receive Date: 20160719
  Receipt Date: 20160719
  Transmission Date: 20161109
  Serious: Yes (Other)
  Sender: FDA-Public Use
  Company Number: CN-JUBILANT GENERICS LIMITED-1055225

PATIENT
  Age: 66 Year
  Sex: Female

DRUGS (2)
  1. OLANZAPINE. [Suspect]
     Active Substance: OLANZAPINE
  2. CHLORPROMAZINE. [Suspect]
     Active Substance: CHLORPROMAZINE

REACTIONS (1)
  - Ocular toxicity [Unknown]

NARRATIVE: CASE EVENT DATE: 20160705
